FAERS Safety Report 20797820 (Version 1)
Quarter: 2022Q2

REPORT INFORMATION
  Report Type: Spontaneous
  Country: AG (occurrence: None)
  Receive Date: 20220506
  Receipt Date: 20220506
  Transmission Date: 20220721
  Serious: Yes (Hospitalization)
  Sender: FDA-Public Use
  Company Number: None

PATIENT
  Sex: Male

DRUGS (13)
  1. XALKORI [Suspect]
     Active Substance: CRIZOTINIB
     Indication: Lung carcinoma cell type unspecified stage 0
     Dosage: FREQUENCY : TWICE A DAY;?
     Route: 048
  2. ALOGLIPTIN TAB [Concomitant]
  3. APAP/CODEINE TAB [Concomitant]
  4. DIPHENHYDRAM CAP [Concomitant]
  5. FOLIC ACID TAB [Concomitant]
  6. HYDROCO/APAP TAB [Concomitant]
  7. MEGESTROL ACETATE [Concomitant]
     Active Substance: MEGESTROL ACETATE
  8. METFORMIN TAB [Concomitant]
  9. ONDANSETRON TAB [Concomitant]
  10. ROSUVASTATIN [Concomitant]
     Active Substance: ROSUVASTATIN
  11. XARELTO TAB [Concomitant]
  12. ZINC TAB [Concomitant]
  13. ZOLPIDEM TAB [Concomitant]

REACTIONS (1)
  - Hospitalisation [None]
